FAERS Safety Report 8621221-8 (Version None)
Quarter: 2012Q3

REPORT INFORMATION
  Report Type: 
  Country: None (occurrence: None)
  Receive Date: 20120824
  Receipt Date: 20120724
  Transmission Date: 20120928
  Serious: Yes (Hospitalization)
  Sender: FDA-Public Use
  Company Number: JP-MSD-2012SP024996

PATIENT

DRUGS (26)
  1. REBETOL [Suspect]
     Dosage: 400 MG, QD
     Route: 048
     Dates: start: 20120403, end: 20120424
  2. LASIX [Concomitant]
     Route: 048
     Dates: start: 20120427, end: 20120427
  3. PEG-INTRON [Suspect]
     Indication: HEPATITIS C
     Dosage: 1.5 ?G/KG, QW
     Route: 058
     Dates: end: 20120424
  4. ENALAPRIL MALEATE [Concomitant]
     Indication: PRODUCT USED FOR UNKNOWN INDICATION
     Dosage: UPDATE(28JUN2012)
     Route: 048
     Dates: start: 20120429, end: 20120522
  5. AMLODIPINE [Concomitant]
     Indication: HYPERTENSION
     Dosage: UPDATE (28JUN2012)
     Route: 048
     Dates: end: 20120522
  6. AMLODIPINE BESYLATE [Concomitant]
     Indication: HYPERTENSION
     Route: 048
     Dates: end: 20120522
  7. PEG-INTRON [Suspect]
     Dosage: 1.5MCG/KG/WEEK
     Route: 058
     Dates: start: 20120313, end: 20120424
  8. AMLODIPINE BESYLATE [Concomitant]
     Indication: HYPERTENSION
     Dosage: FORMULATION:POR
     Route: 048
  9. ENALAPRIL MALEATE [Concomitant]
     Indication: HYPERTENSION
     Dosage: FORMULATION:POR
     Route: 048
  10. LACTIC ACID [Concomitant]
     Indication: PRODUCT USED FOR UNKNOWN INDICATION
     Dosage: UPDATE(28JUN2012)ANTIBIOTICS-RESITANT LACTIC ACID BACTERIAE, LACB R, FORMULATION POW
     Route: 048
     Dates: start: 20120522, end: 20120529
  11. REBETOL [Suspect]
     Indication: HEPATITIS C
     Dosage: 800 MG, QD
     Route: 048
     Dates: end: 20120402
  12. AMLODIPINE BESYLATE [Concomitant]
     Route: 048
  13. ENALAPRIL MALEATE [Concomitant]
     Route: 048
  14. TELAVIC [Suspect]
     Indication: HEPATITIS C
     Route: 048
     Dates: start: 20120313, end: 20120424
  15. LEVOTHYROXINE SODIUM [Concomitant]
     Indication: HYPOTHYROIDISM
     Dosage: FORMULATION: POR
     Route: 048
  16. LEVOTHYROXINE SODIUM [Concomitant]
     Route: 048
  17. LASIX [Concomitant]
     Indication: PRODUCT USED FOR UNKNOWN INDICATION
     Dosage: UPDATE(28JUN2012)
     Route: 048
     Dates: start: 20120427, end: 20120427
  18. REBAMIPIDE [Concomitant]
     Indication: PROPHYLAXIS
     Dosage: UPDATE (28JUN2012)
     Route: 048
  19. LANSOPRAZOLE [Concomitant]
     Route: 048
  20. PEG-INTRON [Suspect]
     Dosage: 1.5MCG/KG/WEEK
     Route: 058
     Dates: start: 20120508
  21. ANTIVIRAL (UNSPECIFIED) [Suspect]
     Indication: HEPATITIS C
     Dosage: 1500 MG, QD
     Route: 048
     Dates: start: 20120313, end: 20120424
  22. FLOMOX [Concomitant]
     Indication: PRODUCT USED FOR UNKNOWN INDICATION
     Dosage: UPDATE(28JUN2012)
     Route: 048
     Dates: start: 20120522, end: 20120527
  23. LACB R [Concomitant]
     Route: 048
     Dates: start: 20120522, end: 20120529
  24. REBAMIPIDE OD [Concomitant]
     Indication: PROPHYLAXIS
     Route: 048
  25. REBETOL [Suspect]
     Route: 048
     Dates: start: 20120313, end: 20120402
  26. LANSOPRAZOLE [Concomitant]
     Indication: PROPHYLAXIS
     Dosage: UPDATE (28JUN2012)
     Route: 048

REACTIONS (1)
  - PYELONEPHRITIS [None]
